FAERS Safety Report 9146832 (Version 2)
Quarter: 2013Q1

REPORT INFORMATION
  Report Type: Spontaneous
  Country: JP (occurrence: JP)
  Receive Date: 20130307
  Receipt Date: 20130320
  Transmission Date: 20140127
  Serious: Yes (Other)
  Sender: FDA-Public Use
  Company Number: JP-JNJFOC-20130301668

PATIENT
  Age: 7 Decade
  Sex: Female

DRUGS (1)
  1. LISTERINE COOLMINT [Suspect]
     Indication: DENTAL DISORDER PROPHYLAXIS
     Route: 048

REACTIONS (1)
  - Oral fungal infection [Not Recovered/Not Resolved]
